FAERS Safety Report 7540512-5 (Version None)
Quarter: 2011Q2

REPORT INFORMATION
  Report Type: 
  Country: None (occurrence: None)
  Receive Date: 20110610
  Receipt Date: 20110524
  Transmission Date: 20111010
  Serious: Yes (Congenital Anomaly)
  Sender: FDA-Public Use
  Company Number: A0930806A

PATIENT
  Sex: Female
  Weight: 3.3 kg

DRUGS (1)
  1. PAXIL [Suspect]
     Indication: ANXIETY
     Dosage: 12.5MG PER DAY
     Route: 048

REACTIONS (4)
  - DRUG EXPOSURE DURING PREGNANCY [None]
  - ARNOLD-CHIARI MALFORMATION [None]
  - ATRIAL SEPTAL DEFECT [None]
  - CARDIAC MURMUR [None]
